FAERS Safety Report 23757524 (Version 2)
Quarter: 2024Q2

REPORT INFORMATION
  Report Type: Spontaneous
  Country: US (occurrence: US)
  Receive Date: 20240418
  Receipt Date: 20240424
  Transmission Date: 20240715
  Serious: Yes (Other)
  Sender: FDA-Public Use
  Company Number: US-PFIZER INC-202400087798

PATIENT
  Age: 73 Year
  Sex: Female
  Weight: 91.909 kg

DRUGS (2)
  1. INLYTA [Suspect]
     Active Substance: AXITINIB
     Indication: Renal cancer
     Dosage: 5 MG, 2X/DAY
     Route: 048
  2. KEYTRUDA [Concomitant]
     Active Substance: PEMBROLIZUMAB

REACTIONS (4)
  - Atrial fibrillation [Unknown]
  - Oral pain [Not Recovered/Not Resolved]
  - Diarrhoea [Recovering/Resolving]
  - Arthralgia [Unknown]
